FAERS Safety Report 11363901 (Version 1)
Quarter: 2015Q3

REPORT INFORMATION
  Report Type: Spontaneous
  Country: US (occurrence: US)
  Receive Date: 20150811
  Receipt Date: 20150811
  Transmission Date: 20151125
  Serious: Yes (Other)
  Sender: FDA-Public Use
  Company Number: US-ENDO PHARMACEUTICALS INC.-FELO20150001

PATIENT
  Age: 60 Year
  Sex: Male

DRUGS (1)
  1. FELODIPINEEXTENDED-RELEASE TABLETS [Suspect]
     Active Substance: FELODIPINE
     Indication: PRODUCT USED FOR UNKNOWN INDICATION
     Route: 065

REACTIONS (3)
  - Memory impairment [Unknown]
  - Seizure [Unknown]
  - Loss of consciousness [None]
